FAERS Safety Report 11801833 (Version 1)
Quarter: 2015Q4

REPORT INFORMATION
  Report Type: Spontaneous
  Country: US (occurrence: US)
  Receive Date: 20151204
  Receipt Date: 20151204
  Transmission Date: 20160305
  Serious: No
  Sender: FDA-Public Use
  Company Number: US-WATSON-2015-18298

PATIENT
  Age: 53 Year
  Sex: Female

DRUGS (2)
  1. PREDNISONE (WATSON LABORATORIES) [Suspect]
     Active Substance: PREDNISONE
     Indication: ASTHMA
     Dosage: UNK, OFF AND ON FOR ABOUT 2.5 YEARS
     Route: 065
  2. PREDNISONE (WATSON LABORATORIES) [Suspect]
     Active Substance: PREDNISONE
     Indication: INFLAMMATION
     Dosage: 10 MG, 2 TABS EVERY OTHER DAY
     Route: 048
     Dates: start: 20150806

REACTIONS (4)
  - Feeling jittery [Unknown]
  - Feeling abnormal [Unknown]
  - Drug ineffective [Recovered/Resolved]
  - Abdominal pain upper [Unknown]

NARRATIVE: CASE EVENT DATE: 20150806
